FAERS Safety Report 13557663 (Version 6)
Quarter: 2018Q1

REPORT INFORMATION
  Report Type: Report from Study
  Country: US (occurrence: US)
  Receive Date: 20170518
  Receipt Date: 20180122
  Transmission Date: 20180508
  Serious: Yes (Hospitalization, Other)
  Sender: FDA-Public Use
  Company Number: US-JNJFOC-20170502960

PATIENT
  Age: 73 Year
  Sex: Male

DRUGS (17)
  1. IMBRUVICA [Suspect]
     Active Substance: IBRUTINIB
     Indication: CHRONIC LYMPHOCYTIC LEUKAEMIA
     Route: 048
     Dates: start: 20170120
  2. IMBRUVICA [Suspect]
     Active Substance: IBRUTINIB
     Indication: CHRONIC LYMPHOCYTIC LEUKAEMIA
     Route: 048
     Dates: start: 20170509
  3. AMOXICILLIN. [Concomitant]
     Active Substance: AMOXICILLIN
  4. LOSARTAN. [Concomitant]
     Active Substance: LOSARTAN
  5. NIACIN. [Concomitant]
     Active Substance: NIACIN
  6. ALLOPURINOL. [Concomitant]
     Active Substance: ALLOPURINOL
  7. FLUTICASONE. [Concomitant]
     Active Substance: FLUTICASONE
  8. FISH OIL W/TOCOPHEROL [Concomitant]
  9. TUMS [Concomitant]
     Active Substance: CALCIUM CARBONATE
  10. ASPIRIN. [Concomitant]
     Active Substance: ASPIRIN
  11. ALEVE [Concomitant]
     Active Substance: NAPROXEN SODIUM
  12. IMBRUVICA [Suspect]
     Active Substance: IBRUTINIB
     Indication: CHRONIC LYMPHOCYTIC LEUKAEMIA
     Route: 048
     Dates: start: 20170119
  13. HYDROCHLOROTHIAZIDE. [Concomitant]
     Active Substance: HYDROCHLOROTHIAZIDE
  14. POTASSIUM CHLORIDE. [Concomitant]
     Active Substance: POTASSIUM CHLORIDE
  15. VITAMIN D3 [Concomitant]
     Active Substance: CHOLECALCIFEROL
  16. FOLIC ACID. [Concomitant]
     Active Substance: FOLIC ACID
  17. CLONIDINE. [Concomitant]
     Active Substance: CLONIDINE

REACTIONS (6)
  - Artery dissection [Unknown]
  - Myocardial infarction [Unknown]
  - Aortic aneurysm [Not Recovered/Not Resolved]
  - White blood cell count decreased [Recovered/Resolved]
  - Ischaemic nephropathy [Unknown]
  - Fatigue [Not Recovered/Not Resolved]

NARRATIVE: CASE EVENT DATE: 20170507
